FAERS Safety Report 13299973 (Version 1)
Quarter: 2017Q1

REPORT INFORMATION
  Report Type: Spontaneous
  Country: DE (occurrence: DE)
  Receive Date: 20170306
  Receipt Date: 20170306
  Transmission Date: 20170428
  Serious: Yes (Hospitalization, Other)
  Sender: FDA-Public Use
  Company Number: DE-ABBVIE-17P-062-1896150-00

PATIENT
  Sex: Female

DRUGS (1)
  1. TARKA [Suspect]
     Active Substance: TRANDOLAPRIL\VERAPAMIL HYDROCHLORIDE
     Indication: PRODUCT USED FOR UNKNOWN INDICATION
     Dosage: 180 MG/2 MG, TABLETTEN MIT VER?NDERTER WIRKSTOFFFREISETZUNG
     Route: 065

REACTIONS (5)
  - Myocardial infarction [Recovering/Resolving]
  - Hypertension [Recovering/Resolving]
  - Cardiac disorder [Recovering/Resolving]
  - Respiratory disorder [Recovering/Resolving]
  - Pain [Recovering/Resolving]

NARRATIVE: CASE EVENT DATE: 201701
